FAERS Safety Report 5933535-0 (Version None)
Quarter: 2008Q4

REPORT INFORMATION
  Report Type: 
  Country: None (occurrence: None)
  Receive Date: 20081024
  Receipt Date: 20081015
  Transmission Date: 20090506
  Serious: Yes (Hospitalization)
  Sender: FDA-Public Use
  Company Number: 2008BI027534

PATIENT
  Age: 42 Year
  Sex: Male

DRUGS (1)
  1. AVONEX [Suspect]
     Indication: MULTIPLE SCLEROSIS
     Dosage: 30 UG;QW;IM
     Route: 030
     Dates: start: 20080201, end: 20080926

REACTIONS (4)
  - CENTRAL NERVOUS SYSTEM LESION [None]
  - DISEASE PROGRESSION [None]
  - FACIAL PARESIS [None]
  - MULTIPLE SCLEROSIS [None]
